FAERS Safety Report 6717524-4 (Version None)
Quarter: 2010Q2

REPORT INFORMATION
  Report Type: 
  Country: None (occurrence: None)
  Receive Date: 20100503
  Receipt Date: 20100421
  Transmission Date: 20101027
  Serious: Yes (Hospitalization)
  Sender: FDA-Public Use
  Company Number: DSA_42513_2010

PATIENT
  Sex: Male

DRUGS (4)
  1. XENAZINE [Suspect]
     Indication: HUNTINGTON'S CHOREA
     Dosage: 12.5 MG BID ORAL
     Route: 048
     Dates: start: 20091201, end: 20091225
  2. CLONAZEPAM [Concomitant]
  3. TERAZOSIN HCL [Concomitant]
  4. DIOVAN [Concomitant]

REACTIONS (2)
  - HIP FRACTURE [None]
  - SUICIDE ATTEMPT [None]
